FAERS Safety Report 9891643 (Version 1)
Quarter: 2014Q1

REPORT INFORMATION
  Report Type: Spontaneous
  Country: JP (occurrence: JP)
  Receive Date: 20140212
  Receipt Date: 20140212
  Transmission Date: 20141002
  Serious: Yes (Other)
  Sender: FDA-Public Use
  Company Number: JP-SA-2014SA015901

PATIENT
  Age: 84 Year
  Sex: Male

DRUGS (1)
  1. CLOPIDOGREL BISULFATE [Suspect]
     Indication: ANGINA PECTORIS
     Route: 048

REACTIONS (7)
  - Insulin autoimmune syndrome [Recovering/Resolving]
  - Anti-insulin antibody increased [Recovering/Resolving]
  - Altered state of consciousness [Recovering/Resolving]
  - Hypoglycaemia [Recovering/Resolving]
  - Blood insulin increased [Recovering/Resolving]
  - Insulin C-peptide increased [Recovering/Resolving]
  - Hypoglycaemia [Recovering/Resolving]
